FAERS Safety Report 7773251-6 (Version None)
Quarter: 2011Q3

REPORT INFORMATION
  Report Type: 
  Country: None (occurrence: None)
  Receive Date: 20110922
  Receipt Date: 20110913
  Transmission Date: 20111222
  Serious: Yes (Other)
  Sender: FDA-Public Use
  Company Number: GB-BAXTER-2011BH029307

PATIENT
  Age: 54 Year

DRUGS (4)
  1. FEIBA [Suspect]
     Route: 042
  2. FEIBA [Suspect]
     Indication: FACTOR VIII DEFICIENCY
     Dosage: DOSE UNIT:UNITS PER KILOGRAM
     Route: 042
  3. ANTIHEMOPHILIC FACTOR NOS [Suspect]
     Indication: FACTOR VIII DEFICIENCY
     Route: 065
  4. NOVOSEVEN [Suspect]
     Indication: FACTOR VIII DEFICIENCY
     Route: 065

REACTIONS (1)
  - DRUG INEFFECTIVE [None]
